FAERS Safety Report 6294189-X (Version None)
Quarter: 2009Q3

REPORT INFORMATION
  Report Type: 
  Country: None (occurrence: None)
  Receive Date: 20090803
  Receipt Date: 20090212
  Transmission Date: 20100115
  Serious: No
  Sender: FDA-Public Use
  Company Number: A0768444A

PATIENT
  Age: 47 Year
  Sex: Male

DRUGS (1)
  1. NICORETTE (MINT) [Suspect]
     Dates: start: 20090209, end: 20090212

REACTIONS (2)
  - OEDEMA MOUTH [None]
  - OROPHARYNGEAL BLISTERING [None]
